FAERS Safety Report 8159780-4 (Version None)
Quarter: 2012Q1

REPORT INFORMATION
  Report Type: 
  Country: None (occurrence: None)
  Receive Date: 20120223
  Receipt Date: 20120213
  Transmission Date: 20120608
  Serious: Yes (Death, Other)
  Sender: FDA-Public Use
  Company Number: TW-ACTELION-A-CH2010-36740

PATIENT
  Sex: Male
  Weight: 72 kg

DRUGS (8)
  1. TRACLEER [Suspect]
     Dosage: 62.5 MG, BID
     Route: 048
     Dates: start: 20100306, end: 20100407
  2. FUROSEMIDE [Concomitant]
  3. DILTIAZEM HCL [Concomitant]
  4. LANSOPRAZOLE [Concomitant]
  5. WARFARIN SODIUM [Concomitant]
  6. ISOSORBIDE DINITRATE [Concomitant]
  7. DIGOXIN [Concomitant]
  8. TRACLEER [Suspect]
     Indication: PULMONARY ARTERIAL HYPERTENSION
     Dosage: 125 MG, BID
     Route: 048
     Dates: start: 20100408, end: 20100414

REACTIONS (11)
  - OEDEMA [None]
  - LEUKOCYTOSIS [None]
  - SEPTIC SHOCK [None]
  - OXYGEN SATURATION DECREASED [None]
  - PULMONARY ARTERIAL HYPERTENSION [None]
  - RESPIRATORY FAILURE [None]
  - PNEUMONIA [None]
  - CIRCULATORY COLLAPSE [None]
  - APNOEA [None]
  - CHEST X-RAY ABNORMAL [None]
  - CONDITION AGGRAVATED [None]
